FAERS Safety Report 9152245 (Version 1)
Quarter: 2013Q1

REPORT INFORMATION
  Report Type: Spontaneous
  Country: US (occurrence: US)
  Receive Date: 20130308
  Receipt Date: 20130308
  Transmission Date: 20140127
  Serious: Yes (Other)
  Sender: FDA-Public Use
  Company Number: US-ELI_LILLY_AND_COMPANY-US201302003258

PATIENT
  Sex: Female
  Weight: 64.4 kg

DRUGS (6)
  1. CYMBALTA [Suspect]
     Indication: FIBROMYALGIA
     Dosage: 20 MG, QD
     Dates: start: 20120401, end: 20120705
  2. CYMBALTA [Suspect]
     Dosage: 30 MG, UNKNOWN
     Dates: start: 20120801
  3. KARIVA [Concomitant]
     Dosage: UNK, UNKNOWN
  4. NASONEX [Concomitant]
     Dosage: UNK, UNKNOWN
  5. OMEPRAZOLE [Concomitant]
     Dosage: UNK, UNKNOWN
  6. TRAZODONE [Concomitant]
     Dosage: UNK, UNKNOWN

REACTIONS (4)
  - Cerebral disorder [Recovered/Resolved]
  - VIIth nerve paralysis [Recovered/Resolved]
  - Hypoaesthesia [Recovered/Resolved]
  - Intentional drug misuse [Recovered/Resolved]
